FAERS Safety Report 19764342 (Version 2)
Quarter: 2021Q3

REPORT INFORMATION
  Report Type: Report from Study
  Country: JP (occurrence: JP)
  Receive Date: 20210830
  Receipt Date: 20210903
  Transmission Date: 20211014
  Serious: Yes (Hospitalization)
  Sender: FDA-Public Use
  Company Number: JP-EISAI MEDICAL RESEARCH-EC-2021-098374

PATIENT
  Age: 68 Year
  Sex: Female
  Weight: 64 kg

DRUGS (4)
  1. TRASTUZUMAB. [Suspect]
     Active Substance: TRASTUZUMAB
     Indication: HER2 POSITIVE BREAST CANCER
     Dosage: UNKNOWN FREQUENCY
     Route: 065
     Dates: start: 20201014
  2. HALAVEN [Suspect]
     Active Substance: ERIBULIN MESYLATE
     Indication: HER2 POSITIVE BREAST CANCER
     Route: 042
     Dates: start: 20201014
  3. PERTUZUMAB. [Suspect]
     Active Substance: PERTUZUMAB
     Indication: HER2 POSITIVE BREAST CANCER
     Dosage: UNKNOWN FREQUENCY
     Route: 065
     Dates: start: 20201014
  4. TRULICITY [Concomitant]
     Active Substance: DULAGLUTIDE
     Indication: TYPE 2 DIABETES MELLITUS
     Dates: start: 20201013

REACTIONS (1)
  - Febrile neutropenia [Recovered/Resolved]

NARRATIVE: CASE EVENT DATE: 20210818
